FAERS Safety Report 5747683-1 (Version None)
Quarter: 2008Q2

REPORT INFORMATION
  Report Type: 
  Country: None (occurrence: None)
  Receive Date: 20080523
  Receipt Date: 20080520
  Transmission Date: 20081010
  Serious: Yes (Hospitalization)
  Sender: FDA-Public Use
  Company Number: DE-ASTRAZENECA-2008PK01069

PATIENT
  Age: 31 Year
  Sex: Male
  Weight: 69 kg

DRUGS (1)
  1. QUETIAPIN [Suspect]
     Indication: PSYCHOTIC DISORDER
     Route: 048
     Dates: start: 20070201

REACTIONS (1)
  - PSYCHOTIC DISORDER [None]
